FAERS Safety Report 4431618-8 (Version None)
Quarter: 2004Q3

REPORT INFORMATION
  Report Type: 
  Country: None (occurrence: None)
  Receive Date: 20040722
  Receipt Date: 20040507
  Transmission Date: 20050211
  Serious: Yes (Other)
  Sender: FDA-Public Use
  Company Number: PHEH2004US03625

PATIENT
  Age: 66 Year
  Sex: Male

DRUGS (1)
  1. MELLARIL [Suspect]
     Indication: BIPOLAR DISORDER
     Dates: start: 19830101, end: 19900101

REACTIONS (2)
  - EYELID FUNCTION DISORDER [None]
  - TARDIVE DYSKINESIA [None]
